FAERS Safety Report 5515091-4 (Version None)
Quarter: 2007Q4

REPORT INFORMATION
  Report Type: 
  Country: None (occurrence: None)
  Receive Date: 20071113
  Receipt Date: 20061227
  Transmission Date: 20080405
  Serious: No
  Sender: FDA-Public Use
  Company Number: A0632615A

PATIENT
  Age: 77 Year
  Sex: Male

DRUGS (10)
  1. COREG [Suspect]
     Indication: DRUG USE FOR UNKNOWN INDICATION
     Dosage: 12.5TAB TWICE PER DAY
     Route: 048
  2. ASPIRIN [Concomitant]
  3. LIPITOR [Concomitant]
  4. PLAVIX [Concomitant]
  5. METFORMIN HCL [Concomitant]
  6. INOSITOL [Concomitant]
  7. FUROSEMIDE [Concomitant]
  8. NORVASC [Concomitant]
  9. UNKNOWN MEDICATION [Concomitant]
  10. COZAAR [Concomitant]

REACTIONS (1)
  - BLOOD GLUCOSE INCREASED [None]
